FAERS Safety Report 8971509 (Version 1)
Quarter: 2012Q4

REPORT INFORMATION
  Report Type: 
  Country: US (occurrence: US)
  Receive Date: 20121218
  Receipt Date: 20121218
  Transmission Date: 20130627
  Serious: Yes (Death, Other)
  Sender: FDA-Public Use
  Company Number: US-PFIZER INC-2012309526

PATIENT
  Sex: Female

DRUGS (19)
  1. SUTENT [Suspect]
     Indication: RENAL CELL CANCER
     Dosage: 25 mg, UNK
     Dates: start: 20120109
  2. LOVENOX [Concomitant]
  3. DIAZEPAM [Concomitant]
  4. AMLODIPINE BESYLATE [Concomitant]
  5. RISPERIDONE [Concomitant]
  6. LISINOPRIL [Concomitant]
  7. CLONIDINE HCL [Concomitant]
  8. PRILOSEC [Concomitant]
  9. LEVOTHYROXINE SODIUM [Concomitant]
  10. CITALOPRAM HYDROBROMIDE [Concomitant]
  11. PRAVASTATIN SODIUM [Concomitant]
  12. IRON FORMULA [Concomitant]
  13. CALCIUM CARBONATE WITH VITAMIN D [Concomitant]
  14. OLANZAPINE [Concomitant]
  15. FOLBECAL [Concomitant]
  16. VITAMIN B-12 ACTIVE [Concomitant]
  17. METFORMIN HYDROCHLORIDE [Concomitant]
  18. FERROUS SULPHATE CR [Concomitant]
  19. ASPIRIN ADULT LOW STRENGHT [Concomitant]

REACTIONS (1)
  - Death [Fatal]
